FAERS Safety Report 5835159-2 (Version None)
Quarter: 2008Q3

REPORT INFORMATION
  Report Type: 
  Country: None (occurrence: None)
  Receive Date: 20080729
  Receipt Date: 20080226
  Transmission Date: 20090109
  Serious: Yes (Other)
  Sender: FDA-Public Use
  Company Number: MIN-00292

PATIENT
  Age: 16 Year
  Sex: Female

DRUGS (4)
  1. MINOCIN [Suspect]
     Indication: ACNE
     Dosage: 50 MG, ORAL
     Route: 048
     Dates: start: 20071101, end: 20071211
  2. ALBUTEROL [Concomitant]
  3. ALLEGRA [Concomitant]
  4. SINGULAIR [Concomitant]

REACTIONS (1)
  - HYPERSENSITIVITY [None]
